FAERS Safety Report 16074107 (Version 1)
Quarter: 2019Q1

REPORT INFORMATION
  Report Type: Report from Study
  Country: ES (occurrence: ES)
  Receive Date: 20190314
  Receipt Date: 20190314
  Transmission Date: 20190418
  Serious: Yes (Other)
  Sender: FDA-Public Use
  Company Number: ES-SA-2018SA340271

PATIENT
  Sex: Male
  Weight: 76 kg

DRUGS (3)
  1. INSULIN GLARGINE [Suspect]
     Active Substance: INSULIN GLARGINE
     Indication: TYPE 2 DIABETES MELLITUS
     Dosage: 18 IU, QD
     Route: 058
     Dates: start: 20171130
  2. VOKANAMET [CANAGLIFLOZIN HEMIHYDRATE;METFORMIN HYDROCHLORIDE] [Concomitant]
     Indication: TYPE 2 DIABETES MELLITUS
     Dosage: 1/4,-1/4-1/4 TID
     Route: 048
     Dates: start: 20171130
  3. INSULIN GLARGINE [Suspect]
     Active Substance: INSULIN GLARGINE
     Dosage: 16 IU , QD
     Route: 058

REACTIONS (3)
  - Hypoglycaemia [Not Recovered/Not Resolved]
  - Weight decreased [Unknown]
  - Carpal tunnel syndrome [Unknown]

NARRATIVE: CASE EVENT DATE: 201902
